FAERS Safety Report 11101065 (Version 1)
Quarter: 2015Q2

REPORT INFORMATION
  Report Type: Spontaneous
  Country: CN (occurrence: CN)
  Receive Date: 20150508
  Receipt Date: 20150508
  Transmission Date: 20150821
  Serious: Yes (Hospitalization)
  Sender: FDA-Public Use
  Company Number: CN-ELI_LILLY_AND_COMPANY-CN201504009419

PATIENT
  Age: 32 Year
  Sex: Female
  Weight: 53 kg

DRUGS (1)
  1. CECLOR [Suspect]
     Active Substance: CEFACLOR
     Indication: LYMPHADENITIS
     Dosage: 0.375 G, BID
     Route: 048
     Dates: start: 20140915, end: 20140915

REACTIONS (1)
  - Urticaria [Recovering/Resolving]

NARRATIVE: CASE EVENT DATE: 20140916
